FAERS Safety Report 22144272 (Version 7)
Quarter: 2024Q2

REPORT INFORMATION
  Report Type: Report from Study
  Country: IL (occurrence: IL)
  Receive Date: 20230328
  Receipt Date: 20240523
  Transmission Date: 20240716
  Serious: Yes (Death, Hospitalization)
  Sender: FDA-Public Use
  Company Number: IL-ABBVIE-21K-082-3902064-00

PATIENT
  Age: 88 Year
  Sex: Male
  Weight: 76 kg

DRUGS (78)
  1. VENETOCLAX [Suspect]
     Active Substance: VENETOCLAX
     Indication: Acute myeloid leukaemia
     Dosage: DURATION TEXT: INTERRUPTION COUNT RECOVERY
     Route: 048
     Dates: start: 20230625, end: 20230625
  2. VENETOCLAX [Suspect]
     Active Substance: VENETOCLAX
     Indication: Acute myeloid leukaemia
     Dosage: RAMP UP; DURATION TEXT: DOSE REDUCTION - USE OF POSACONAZOLE
     Route: 048
     Dates: start: 20210321, end: 20210321
  3. VENETOCLAX [Suspect]
     Active Substance: VENETOCLAX
     Indication: Acute myeloid leukaemia
     Dosage: RAMP UP; DURATION TEXT: INTERRUPTION COUNT RECOVERY
     Route: 048
     Dates: start: 20210322, end: 20210322
  4. VENETOCLAX [Suspect]
     Active Substance: VENETOCLAX
     Indication: Acute myeloid leukaemia
     Dosage: DOSE REDUCTION, CONCOMITANT USE OF POSACONAZOLE
     Route: 048
     Dates: start: 20220302, end: 20220315
  5. VENETOCLAX [Suspect]
     Active Substance: VENETOCLAX
     Indication: Acute myeloid leukaemia
     Dosage: DOSE REDUCTION, CONCOMITANT USE OF POSACONAZOLE; DURATION TEXT: INTERRUPTION COUNT RECOVERY
     Route: 048
     Dates: start: 20210323, end: 20210325
  6. VENETOCLAX [Suspect]
     Active Substance: VENETOCLAX
     Indication: Acute myeloid leukaemia
     Dosage: DURATION TEXT: INTERRUPTION COUNT RECOVERY
     Route: 048
     Dates: start: 20220626, end: 20220709
  7. VENETOCLAX [Suspect]
     Active Substance: VENETOCLAX
     Indication: Acute myeloid leukaemia
     Dosage: DURATION TEXT: INTERRUPTION COUNT RECOVERY
     Route: 048
     Dates: start: 20220522, end: 20220604
  8. VENETOCLAX [Suspect]
     Active Substance: VENETOCLAX
     Indication: Acute myeloid leukaemia
     Dosage: DURATION TEXT: INTERRUPTION COUNT RECOVERY
     Route: 048
     Dates: start: 20220119, end: 20220201
  9. VENETOCLAX [Suspect]
     Active Substance: VENETOCLAX
     Indication: Acute myeloid leukaemia
     Dosage: DURATION TEXT: INTERRUPTION COUNT RECOVERY
     Route: 048
     Dates: start: 20210613, end: 20210710
  10. VENETOCLAX [Suspect]
     Active Substance: VENETOCLAX
     Indication: Acute myeloid leukaemia
     Dosage: DURATION TEXT: INTERRUPTION COUNT RECOVERY
     Route: 048
     Dates: start: 20211103, end: 20211130
  11. VENETOCLAX [Suspect]
     Active Substance: VENETOCLAX
     Indication: Acute myeloid leukaemia
     Dosage: INTERRUPTION, COUNT RECOVERY (ANC, PLATELETS OR HEMOGLOBIN); DURATION TEXT: INTERRUPTION COUNT RE...
     Route: 048
     Dates: start: 20210326, end: 20210412
  12. VENETOCLAX [Suspect]
     Active Substance: VENETOCLAX
     Indication: Acute myeloid leukaemia
     Dosage: DURATION TEXT: INTERRUPTION - COUNT RECOVERY
     Route: 048
     Dates: start: 20230507, end: 20230520
  13. VENETOCLAX [Suspect]
     Active Substance: VENETOCLAX
     Indication: Acute myeloid leukaemia
     Dosage: DURATION TEXT: INTERRUPTION COUNT RECOVERY
     Route: 048
     Dates: start: 20221109, end: 20221122
  14. VENETOCLAX [Suspect]
     Active Substance: VENETOCLAX
     Indication: Acute myeloid leukaemia
     Dosage: 400 MILLIGRAM, DURATION TEXT: INTERRUPTION COUNT RECOVERY?FIRST ADMIN DATE-2022
     Route: 048
     Dates: end: 20221122
  15. VENETOCLAX [Suspect]
     Active Substance: VENETOCLAX
     Indication: Acute myeloid leukaemia
     Dosage: DURATION TEXT: INTERRUPTION COUNT RECOVERY
     Route: 048
     Dates: start: 20221009, end: 20221014
  16. VENETOCLAX [Suspect]
     Active Substance: VENETOCLAX
     Indication: Acute myeloid leukaemia
     Dosage: DURATION TEXT: INTERRUPTION COUNT RECOVERY
     Route: 048
     Dates: start: 20210509, end: 20210605
  17. VENETOCLAX [Suspect]
     Active Substance: VENETOCLAX
     Indication: Acute myeloid leukaemia
     Dosage: DURATION TEXT: INTERRUPTION COUNT RECOVERY
     Route: 048
     Dates: start: 20220831, end: 20220913
  18. VENETOCLAX [Suspect]
     Active Substance: VENETOCLAX
     Indication: Acute myeloid leukaemia
     Dosage: DURATION TEXT: INTERRUPTION COUNT RECOVERY
     Route: 048
     Dates: start: 20220731, end: 20220813
  19. VENETOCLAX [Suspect]
     Active Substance: VENETOCLAX
     Indication: Acute myeloid leukaemia
     Dosage: DURATION TEXT: INTERRUPTION COUNT RECOVERY
     Route: 048
     Dates: start: 20210929, end: 20211026
  20. VENETOCLAX [Suspect]
     Active Substance: VENETOCLAX
     Indication: Acute myeloid leukaemia
     Dosage: DURATION TEXT: INTERRUPTION COUNT RECOVERY
     Route: 048
     Dates: start: 20220410, end: 20220423
  21. VENETOCLAX [Suspect]
     Active Substance: VENETOCLAX
     Indication: Acute myeloid leukaemia
     Dosage: INTERRUPTION COUNT RECOVERY
     Route: 048
     Dates: start: 20221225, end: 20230107
  22. VENETOCLAX [Suspect]
     Active Substance: VENETOCLAX
     Indication: Acute myeloid leukaemia
     Dosage: DURATION TEXT: INTERRUPTION - COUNT RECOVERY
     Route: 048
     Dates: start: 20230405, end: 20230415
  23. VENETOCLAX [Suspect]
     Active Substance: VENETOCLAX
     Indication: Acute myeloid leukaemia
     Dosage: DURATION TEXT: INTERRUPTION COUNT RECOVERY
     Route: 048
     Dates: start: 20230226, end: 20230311
  24. VENETOCLAX [Suspect]
     Active Substance: VENETOCLAX
     Indication: Acute myeloid leukaemia
     Dosage: DURATION TEXT: INTERRUPTION COUNT RECOVERY
     Route: 048
     Dates: start: 20221019, end: 20221026
  25. VENETOCLAX [Suspect]
     Active Substance: VENETOCLAX
     Indication: Acute myeloid leukaemia
     Dosage: DURATION TEXT: INTERRUPTION - COUNT RECOVERY
     Route: 048
     Dates: start: 20230122, end: 20230204
  26. VENETOCLAX [Suspect]
     Active Substance: VENETOCLAX
     Indication: Acute myeloid leukaemia
     Dosage: DURATION TEXT: DISCONTINUATION- PATIENT REQUEST
     Route: 048
  27. VENETOCLAX [Suspect]
     Active Substance: VENETOCLAX
     Indication: Acute myeloid leukaemia
     Dosage: DURATION TEXT: INTERRUPTION COUNT RECOVERY?LAST ADMIN DATE-2021
     Route: 048
     Dates: start: 20210822
  28. VENETOCLAX [Suspect]
     Active Substance: VENETOCLAX
     Indication: Acute myeloid leukaemia
     Dosage: DURATION TEXT: INTERRUPTION COUNT RECOVERY; ?LAST ADMIN DATE-  2021
     Route: 048
     Dates: start: 20210718
  29. VENETOCLAX [Suspect]
     Active Substance: VENETOCLAX
     Indication: Acute myeloid leukaemia
     Dosage: DURATION TEXT: INTERRUPTION - COUNT RECOVERY
     Route: 048
     Dates: start: 20211212
  30. AZACITIDINE [Suspect]
     Active Substance: AZACITIDINE
     Indication: Acute myeloid leukaemia
     Dosage: CYCLE 1
     Route: 058
     Dates: start: 20210321, end: 20210327
  31. AZACITIDINE [Suspect]
     Active Substance: AZACITIDINE
     Indication: Acute myeloid leukaemia
     Route: 058
     Dates: start: 20220831, end: 20220901
  32. AZACITIDINE [Suspect]
     Active Substance: AZACITIDINE
     Indication: Acute myeloid leukaemia
     Dosage: DURATION TEXT: CYCLE 21
     Route: 058
     Dates: start: 20230409, end: 20230409
  33. AZACITIDINE [Suspect]
     Active Substance: AZACITIDINE
     Indication: Acute myeloid leukaemia
     Route: 058
     Dates: start: 20210620, end: 20210621
  34. AZACITIDINE [Suspect]
     Active Substance: AZACITIDINE
     Indication: Acute myeloid leukaemia
     Route: 058
     Dates: start: 20210718, end: 20210722
  35. AZACITIDINE [Suspect]
     Active Substance: AZACITIDINE
     Indication: Acute myeloid leukaemia
     Route: 058
     Dates: start: 20210509, end: 20210513
  36. AZACITIDINE [Suspect]
     Active Substance: AZACITIDINE
     Indication: Acute myeloid leukaemia
     Route: 058
     Dates: start: 20220417, end: 20220418
  37. AZACITIDINE [Suspect]
     Active Substance: AZACITIDINE
     Indication: Acute myeloid leukaemia
     Dosage: DURATION TEXT: CYCLE 20
     Route: 058
     Dates: start: 20230402, end: 20230405
  38. AZACITIDINE [Suspect]
     Active Substance: AZACITIDINE
     Indication: Acute myeloid leukaemia
     Route: 058
     Dates: start: 20220306, end: 20220310
  39. AZACITIDINE [Suspect]
     Active Substance: AZACITIDINE
     Indication: Acute myeloid leukaemia
     Route: 058
     Dates: start: 20210516, end: 20210516
  40. AZACITIDINE [Suspect]
     Active Substance: AZACITIDINE
     Indication: Acute myeloid leukaemia
     Route: 058
     Dates: start: 20220410, end: 20220414
  41. AZACITIDINE [Suspect]
     Active Substance: AZACITIDINE
     Indication: Acute myeloid leukaemia
     Route: 058
     Dates: start: 20211003, end: 20211007
  42. AZACITIDINE [Suspect]
     Active Substance: AZACITIDINE
     Indication: Acute myeloid leukaemia
     Route: 058
     Dates: start: 20210725, end: 20210726
  43. AZACITIDINE [Suspect]
     Active Substance: AZACITIDINE
     Indication: Acute myeloid leukaemia
     Route: 058
     Dates: start: 20220807, end: 20220808
  44. AZACITIDINE [Suspect]
     Active Substance: AZACITIDINE
     Indication: Acute myeloid leukaemia
     Route: 058
     Dates: start: 20221113, end: 20221117
  45. AZACITIDINE [Suspect]
     Active Substance: AZACITIDINE
     Indication: Acute myeloid leukaemia
     Route: 058
     Dates: start: 20220522, end: 20220526
  46. AZACITIDINE [Suspect]
     Active Substance: AZACITIDINE
     Indication: Acute myeloid leukaemia
     Route: 058
     Dates: start: 20221009, end: 20221009
  47. AZACITIDINE [Suspect]
     Active Substance: AZACITIDINE
     Indication: Acute myeloid leukaemia
     Route: 058
     Dates: start: 20230226, end: 20230302
  48. AZACITIDINE [Suspect]
     Active Substance: AZACITIDINE
     Indication: Acute myeloid leukaemia
     Route: 058
     Dates: start: 20210822, end: 20210826
  49. AZACITIDINE [Suspect]
     Active Substance: AZACITIDINE
     Indication: Acute myeloid leukaemia
     Route: 058
     Dates: start: 20221011, end: 20221012
  50. AZACITIDINE [Suspect]
     Active Substance: AZACITIDINE
     Indication: Acute myeloid leukaemia
     Route: 058
     Dates: start: 20220302, end: 20220303
  51. AZACITIDINE [Suspect]
     Active Substance: AZACITIDINE
     Indication: Acute myeloid leukaemia
     Route: 058
     Dates: start: 20220904, end: 20220908
  52. AZACITIDINE [Suspect]
     Active Substance: AZACITIDINE
     Indication: Acute myeloid leukaemia
     Route: 058
     Dates: start: 20210829, end: 20210830
  53. AZACITIDINE [Suspect]
     Active Substance: AZACITIDINE
     Indication: Acute myeloid leukaemia
     Route: 058
     Dates: start: 20230122, end: 20230126
  54. AZACITIDINE [Suspect]
     Active Substance: AZACITIDINE
     Indication: Acute myeloid leukaemia
     Route: 058
     Dates: start: 20210518, end: 20210518
  55. AZACITIDINE [Suspect]
     Active Substance: AZACITIDINE
     Indication: Acute myeloid leukaemia
     Route: 058
     Dates: start: 20211107, end: 20211111
  56. AZACITIDINE [Suspect]
     Active Substance: AZACITIDINE
     Indication: Acute myeloid leukaemia
     Route: 058
     Dates: start: 20221109, end: 20221110
  57. AZACITIDINE [Suspect]
     Active Substance: AZACITIDINE
     Indication: Acute myeloid leukaemia
     Route: 058
     Dates: start: 20220731, end: 20220804
  58. AZACITIDINE [Suspect]
     Active Substance: AZACITIDINE
     Indication: Acute myeloid leukaemia
     Route: 058
     Dates: start: 20221225, end: 20221229
  59. AZACITIDINE [Suspect]
     Active Substance: AZACITIDINE
     Indication: Acute myeloid leukaemia
     Route: 058
     Dates: start: 20220626, end: 20220630
  60. AZACITIDINE [Suspect]
     Active Substance: AZACITIDINE
     Indication: Acute myeloid leukaemia
     Route: 058
     Dates: start: 20211212, end: 20211216
  61. AZACITIDINE [Suspect]
     Active Substance: AZACITIDINE
     Indication: Acute myeloid leukaemia
     Route: 058
     Dates: start: 20221018, end: 20221018
  62. AZACITIDINE [Suspect]
     Active Substance: AZACITIDINE
     Indication: Acute myeloid leukaemia
     Route: 058
     Dates: start: 20220703, end: 20220704
  63. AZACITIDINE [Suspect]
     Active Substance: AZACITIDINE
     Indication: Acute myeloid leukaemia
     Route: 058
     Dates: start: 20210613, end: 20210616
  64. AZACITIDINE [Suspect]
     Active Substance: AZACITIDINE
     Indication: Acute myeloid leukaemia
     Route: 058
     Dates: start: 20220529, end: 20220530
  65. AZACITIDINE [Suspect]
     Active Substance: AZACITIDINE
     Indication: Acute myeloid leukaemia
     Route: 058
     Dates: start: 20211103, end: 20211104
  66. AZACITIDINE [Suspect]
     Active Substance: AZACITIDINE
     Indication: Acute myeloid leukaemia
     Route: 058
     Dates: start: 20211219, end: 20211220
  67. AZACITIDINE [Suspect]
     Active Substance: AZACITIDINE
     Indication: Acute myeloid leukaemia
     Route: 058
     Dates: start: 20220123, end: 20220127
  68. AZACITIDINE [Suspect]
     Active Substance: AZACITIDINE
     Indication: Acute myeloid leukaemia
     Dosage: DURATION TEXT: CYCLE 22
     Route: 058
     Dates: start: 20230507, end: 20230511
  69. AZACITIDINE [Suspect]
     Active Substance: AZACITIDINE
     Indication: Acute myeloid leukaemia
     Dosage: DURATION TEXT: CYCLE 23
     Route: 058
     Dates: start: 20230625, end: 20230625
  70. PFIZER-BIONTECH COVID-19 VACCINE [Concomitant]
     Active Substance: TOZINAMERAN
     Indication: COVID-19 immunisation
     Dosage: TIME INTERVAL: TOTAL
     Route: 030
     Dates: start: 20201226, end: 20201226
  71. PFIZER-BIONTECH COVID-19 VACCINE [Concomitant]
     Active Substance: TOZINAMERAN
     Indication: COVID-19 immunisation
     Dosage: TIME INTERVAL: TOTAL
     Route: 030
     Dates: start: 20210116, end: 20210116
  72. BROTIZOLAM [Concomitant]
     Active Substance: BROTIZOLAM
     Indication: Insomnia
     Dates: start: 20121205
  73. ROSUVASTATIN [Concomitant]
     Active Substance: ROSUVASTATIN
     Indication: Hyperlipidaemia
     Dates: start: 20201229
  74. BRILINTA [Concomitant]
     Active Substance: TICAGRELOR
     Indication: Myocardial infarction
     Dates: start: 20200524
  75. BISOPROLOL FUMARATE [Concomitant]
     Active Substance: BISOPROLOL FUMARATE
     Indication: Hypertension
     Dates: start: 20170228
  76. LOSARTAN [Concomitant]
     Active Substance: LOSARTAN
     Indication: Hypertension
     Dates: start: 20210209
  77. OMEPRAZOLE [Concomitant]
     Active Substance: DONEPEZIL HYDROCHLORIDE\OMEPRAZOLE\OMEPRAZOLE MAGNESIUM
     Indication: Prophylaxis
     Dates: start: 20090831
  78. ALLOPURINOL [Concomitant]
     Active Substance: ALLOPURINOL
     Indication: Prophylaxis
     Dates: start: 20210317, end: 202105

REACTIONS (11)
  - Disease progression [Fatal]
  - Febrile neutropenia [Recovered/Resolved]
  - Neutropenia [Recovered/Resolved]
  - Neutropenia [Recovered/Resolved]
  - Pneumonia [Recovered/Resolved]
  - Angina pectoris [Recovered/Resolved]
  - COVID-19 [Recovered/Resolved]
  - Fatigue [Recovered/Resolved]
  - Toothache [Recovered/Resolved]
  - Multiple organ dysfunction syndrome [Fatal]
  - Disease progression [Fatal]

NARRATIVE: CASE EVENT DATE: 20210408
